FAERS Safety Report 4511584-7 (Version None)
Quarter: 2004Q4

REPORT INFORMATION
  Report Type: 
  Country: None (occurrence: None)
  Receive Date: 20041129
  Receipt Date: 20041006
  Transmission Date: 20050328
  Serious: No
  Sender: FDA-Public Use
  Company Number: US-BRISTOL-MYERS SQUIBB COMPANY-12725362

PATIENT
  Age: 40 Year
  Sex: Female

DRUGS (3)
  1. ABILIFY [Suspect]
     Route: 048
  2. VENLAFAXINE HCL [Concomitant]
  3. SEROQUEL [Concomitant]

REACTIONS (2)
  - MALAISE [None]
  - MIGRAINE [None]
